FAERS Safety Report 15425378 (Version 1)
Quarter: 2018Q3

REPORT INFORMATION
  Report Type: Spontaneous
  Country: US (occurrence: US)
  Receive Date: 20180925
  Receipt Date: 20180925
  Transmission Date: 20181010
  Serious: Yes (Other)
  Sender: FDA-Public Use
  Company Number: US-LUNDBECK-DKLU2054629

PATIENT
  Sex: Female

DRUGS (10)
  1. ONFI [Suspect]
     Active Substance: CLOBAZAM
     Route: 048
     Dates: start: 201808
  2. ONFI [Suspect]
     Active Substance: CLOBAZAM
     Route: 048
     Dates: start: 201808
  3. ONFI [Suspect]
     Active Substance: CLOBAZAM
     Route: 048
     Dates: start: 201806, end: 201808
  4. ONFI [Suspect]
     Active Substance: CLOBAZAM
     Route: 048
  5. ONFI [Suspect]
     Active Substance: CLOBAZAM
     Route: 048
     Dates: start: 2017, end: 201806
  6. ONFI [Suspect]
     Active Substance: CLOBAZAM
     Route: 048
  7. ONFI [Suspect]
     Active Substance: CLOBAZAM
     Route: 048
     Dates: start: 201806, end: 201808
  8. ONFI [Suspect]
     Active Substance: CLOBAZAM
     Route: 048
  9. ONFI [Suspect]
     Active Substance: CLOBAZAM
     Indication: PRODUCT USED FOR UNKNOWN INDICATION
     Route: 048
  10. ONFI [Suspect]
     Active Substance: CLOBAZAM
     Route: 048
     Dates: start: 2017, end: 201806

REACTIONS (7)
  - Condition aggravated [Unknown]
  - Generalised tonic-clonic seizure [Unknown]
  - Emotional distress [Unknown]
  - Frustration tolerance decreased [Unknown]
  - Sedation [Unknown]
  - Seizure [Unknown]
  - Anger [Unknown]

NARRATIVE: CASE EVENT DATE: 2017
